FAERS Safety Report 9112210 (Version 2)
Quarter: 2013Q2

REPORT INFORMATION
  Report Type: Spontaneous
  Country: US (occurrence: US)
  Receive Date: 20130219
  Receipt Date: 20130528
  Transmission Date: 20140414
  Serious: Yes (Other)
  Sender: FDA-Public Use
  Company Number: US-BRISTOL-MYERS SQUIBB COMPANY-16699985

PATIENT
  Age: 57 Year
  Sex: Female

DRUGS (2)
  1. ORENCIA [Suspect]
     Dosage: LAST INFUSION: 23APR2013
     Route: 042
     Dates: start: 201203
  2. PREDNISONE [Concomitant]
     Dosage: 10 MG;?METHOPREDNISONE PACK OF 24MG

REACTIONS (6)
  - Crohn^s disease [Unknown]
  - Acne [Not Recovered/Not Resolved]
  - Headache [Unknown]
  - Nausea [Unknown]
  - Rheumatoid arthritis [Unknown]
  - Anaemia [Unknown]
